FAERS Safety Report 23015593 (Version 1)
Quarter: 2023Q4

REPORT INFORMATION
  Report Type: Spontaneous
  Country: US (occurrence: None)
  Receive Date: 20231002
  Receipt Date: 20231002
  Transmission Date: 20240109
  Serious: Yes (Hospitalization)
  Sender: FDA-Public Use
  Company Number: None

PATIENT
  Age: 33 Year
  Sex: Male

DRUGS (1)
  1. ADEMPAS [Suspect]
     Active Substance: RIOCIGUAT
     Indication: Pulmonary arterial hypertension
     Dosage: FREQUENCY : TWICE A DAY;?
     Route: 048
     Dates: start: 20201102, end: 20230917

REACTIONS (11)
  - Hepatic cirrhosis [None]
  - Portal hypertension [None]
  - Varices oesophageal [None]
  - Thrombocytopenia [None]
  - Thrombosis [None]
  - Abdominal pain upper [None]
  - Nausea [None]
  - Vomiting [None]
  - Diverticulitis [None]
  - Pulmonary hypertension [None]
  - Headache [None]

NARRATIVE: CASE EVENT DATE: 20230917
